FAERS Safety Report 4421993-2 (Version None)
Quarter: 2004Q3

REPORT INFORMATION
  Report Type: 
  Country: None (occurrence: None)
  Receive Date: 20040804
  Receipt Date: 20040713
  Transmission Date: 20050211
  Serious: Yes (Death)
  Sender: FDA-Public Use
  Company Number: USA040772581

PATIENT
  Age: 25 Year

DRUGS (1)
  1. ZYPREXA [Suspect]
     Dosage: 25 MG DAY

REACTIONS (1)
  - ARRHYTHMIA [None]
